FAERS Safety Report 19706697 (Version 1)
Quarter: 2021Q3

REPORT INFORMATION
  Report Type: Report from Study
  Country: US (occurrence: US)
  Receive Date: 20210817
  Receipt Date: 20210817
  Transmission Date: 20211014
  Serious: Yes (Other)
  Sender: FDA-Public Use
  Company Number: US-BIOVITRUM-2021US4883

PATIENT
  Age: 35 Year
  Sex: Female

DRUGS (3)
  1. KINERET [Suspect]
     Active Substance: ANAKINRA
     Indication: GASTROINTESTINAL INFLAMMATION
     Route: 058
     Dates: start: 20190419
  2. KINERET [Suspect]
     Active Substance: ANAKINRA
     Indication: COLITIS
  3. KINERET [Suspect]
     Active Substance: ANAKINRA
     Indication: AUTOIMMUNE DISORDER

REACTIONS (6)
  - Condition aggravated [Unknown]
  - Gastrointestinal inflammation [Unknown]
  - Colitis [Unknown]
  - Autoimmune disorder [Unknown]
  - Suspected COVID-19 [Unknown]
  - Off label use [Unknown]

NARRATIVE: CASE EVENT DATE: 20190419
